FAERS Safety Report 14125776 (Version 1)
Quarter: 2017Q4

REPORT INFORMATION
  Report Type: Spontaneous
  Country: US (occurrence: US)
  Receive Date: 20171025
  Receipt Date: 20171025
  Transmission Date: 20180321
  Serious: Yes (Hospitalization, Other)
  Sender: FDA-Public Use
  Company Number: US-GLAXOSMITHKLINE-US2017162878

PATIENT
  Sex: Female

DRUGS (9)
  1. CYMBALTA [Concomitant]
     Active Substance: DULOXETINE HYDROCHLORIDE
  2. LEVOTHYROXIN [Concomitant]
     Active Substance: LEVOTHYROXINE
  3. BENLYSTA [Suspect]
     Active Substance: BELIMUMAB
     Indication: SYSTEMIC LUPUS ERYTHEMATOSUS
     Dosage: UNK UNK, CYC
     Route: 041
  4. PLAQUENIL [Concomitant]
     Active Substance: HYDROXYCHLOROQUINE SULFATE
  5. CALCIUM [Concomitant]
     Active Substance: CALCIUM
  6. ARAVA [Concomitant]
     Active Substance: LEFLUNOMIDE
  7. PREVACID [Concomitant]
     Active Substance: LANSOPRAZOLE
  8. ATORVASTATIN [Concomitant]
     Active Substance: ATORVASTATIN
  9. METOPROLOL. [Concomitant]
     Active Substance: METOPROLOL

REACTIONS (13)
  - Chest discomfort [Recovering/Resolving]
  - Painful respiration [Not Recovered/Not Resolved]
  - Cardiac disorder [Recovering/Resolving]
  - Nausea [Recovering/Resolving]
  - Blood pressure increased [Recovering/Resolving]
  - Pulmonary mass [Not Recovered/Not Resolved]
  - Seasonal allergy [Recovering/Resolving]
  - Pleurisy [Unknown]
  - Chest pain [Unknown]
  - Drug effect decreased [Not Recovered/Not Resolved]
  - Dyspnoea [Recovering/Resolving]
  - Pneumonia [Unknown]
  - Dizziness [Not Recovered/Not Resolved]

NARRATIVE: CASE EVENT DATE: 2012
